FAERS Safety Report 10549234 (Version 2)
Quarter: 2014Q4

REPORT INFORMATION
  Report Type: Not Available
  Country: US (occurrence: AU)
  Receive Date: 20141028
  Receipt Date: 20141028
  Transmission Date: 20150529
  Serious: Yes (Death, Other)
  Sender: FDA-Public Use
  Company Number: AU-CELGENE-008-50794-12032447

PATIENT

DRUGS (4)
  1. VIDAZA [Suspect]
     Active Substance: AZACITIDINE
     Indication: ACUTE MYELOID LEUKAEMIA
  2. VIDAZA [Suspect]
     Active Substance: AZACITIDINE
     Indication: MYELODYSPLASTIC SYNDROME
     Route: 065
  3. PANOBINOSTAT [Concomitant]
     Active Substance: PANOBINOSTAT
     Indication: MYELODYSPLASTIC SYNDROME
     Dosage: 10.20.30 OR 40 MG
     Route: 065
  4. PANOBINOSTAT [Concomitant]
     Active Substance: PANOBINOSTAT
     Indication: ACUTE MYELOID LEUKAEMIA

REACTIONS (40)
  - Haemorrhage [Unknown]
  - Thrombocytopenia [Unknown]
  - Pain [Unknown]
  - Insomnia [Unknown]
  - Neutropenia [Unknown]
  - Infection [Unknown]
  - Hyperglycaemia [Unknown]
  - Injection site erythema [Unknown]
  - Haematotoxicity [Unknown]
  - Decreased appetite [Unknown]
  - Dizziness [Unknown]
  - Disease progression [Unknown]
  - Leukaemic infiltration [Unknown]
  - Atrial fibrillation [Unknown]
  - Nausea [Unknown]
  - Pyrexia [Unknown]
  - Rash [Unknown]
  - Headache [Unknown]
  - Syncope [Unknown]
  - Constipation [Unknown]
  - Oedema [Unknown]
  - Bronchopulmonary aspergillosis [Fatal]
  - Febrile neutropenia [Unknown]
  - Hyponatraemia [Unknown]
  - Candida pneumonia [Unknown]
  - Fatigue [Unknown]
  - Diarrhoea [Unknown]
  - Petechiae [Unknown]
  - Anaemia [Unknown]
  - Injection site pain [Unknown]
  - Death [Fatal]
  - Ascites [Unknown]
  - Mucosal inflammation [Unknown]
  - Hyperbilirubinaemia [Unknown]
  - Dyspnoea [Unknown]
  - Pericardial effusion [Unknown]
  - Somnolence [Unknown]
  - Oesophageal candidiasis [Unknown]
  - Oedema peripheral [Unknown]
  - Vomiting [Unknown]
